FAERS Safety Report 8207367-7 (Version None)
Quarter: 2012Q1

REPORT INFORMATION
  Report Type: 
  Country: None (occurrence: None)
  Receive Date: 20120314
  Receipt Date: 20120208
  Transmission Date: 20120608
  Serious: No
  Sender: FDA-Public Use
  Company Number: US-GLAXOSMITHKLINE-A0965198A

PATIENT
  Sex: Female

DRUGS (1)
  1. NICORETTE [Suspect]
     Route: 062

REACTIONS (2)
  - NAUSEA [None]
  - DRUG INEFFECTIVE [None]
